FAERS Safety Report 14945672 (Version 1)
Quarter: 2018Q2

REPORT INFORMATION
  Report Type: Spontaneous
  Country: US (occurrence: US)
  Receive Date: 20180508
  Receipt Date: 20180508
  Transmission Date: 20180711
  Serious: Yes (Death, Hospitalization, Other)
  Sender: FDA-Public Use
  Company Number: None

PATIENT
  Age: 47 Year
  Sex: Female
  Weight: 54 kg

DRUGS (1)
  1. KEYTRUDA [Suspect]
     Active Substance: PEMBROLIZUMAB
     Indication: GASTRIC CANCER
     Route: 042
     Dates: start: 20180131, end: 20180222

REACTIONS (4)
  - Abdominal pain upper [None]
  - Gastric haemorrhage [None]
  - Fatigue [None]
  - Hepatic enzyme increased [None]

NARRATIVE: CASE EVENT DATE: 20180131
